FAERS Safety Report 5298635-X (Version None)
Quarter: 2007Q2

REPORT INFORMATION
  Report Type: 
  Country: None (occurrence: None)
  Receive Date: 20070410
  Receipt Date: 20070328
  Transmission Date: 20071010
  Serious: Yes (Hospitalization)
  Sender: FDA-Public Use
  Company Number: 231843K07USA

PATIENT
  Age: 45 Year
  Sex: Female

DRUGS (3)
  1. REBIF [Suspect]
     Indication: MULTIPLE SCLEROSIS
     Dosage: NOT REPORTED, NOT REPORTED, NOT  REPORTED
     Dates: start: 20060428, end: 20060618
  2. TYLENOL (COTYLENOL) [Concomitant]
  3. IBUPROFEN [Concomitant]

REACTIONS (1)
  - PANCREATITIS [None]
